APPROVED DRUG PRODUCT: HEPARIN SODIUM
Active Ingredient: HEPARIN SODIUM
Strength: 10,000 UNITS/ML
Dosage Form/Route: INJECTABLE;INJECTION
Application: A211007 | Product #003 | TE Code: AP
Applicant: EMERGE BIOSCIENCE PTE LTD
Approved: May 28, 2019 | RLD: No | RS: No | Type: RX